FAERS Safety Report 20597439 (Version 3)
Quarter: 2022Q2

REPORT INFORMATION
  Report Type: Spontaneous
  Country: TR (occurrence: TR)
  Receive Date: 20220315
  Receipt Date: 20220426
  Transmission Date: 20220720
  Serious: Yes (Death, Other)
  Sender: FDA-Public Use
  Company Number: TR-GILEAD-2022-0573214

PATIENT
  Age: 46 Year
  Sex: Male

DRUGS (2)
  1. VIREAD [Suspect]
     Active Substance: TENOFOVIR DISOPROXIL FUMARATE
     Indication: Antiviral prophylaxis
     Dosage: 245 MG, QD
     Route: 065
  2. HEPATITIS B IMMUNE GLOBULIN [Concomitant]
     Active Substance: HUMAN HEPATITIS B VIRUS IMMUNE GLOBULIN

REACTIONS (3)
  - Sepsis [Fatal]
  - Immunosuppression [Fatal]
  - Off label use [Unknown]

NARRATIVE: CASE EVENT DATE: 20210601
